FAERS Safety Report 15879276 (Version 1)
Quarter: 2019Q1

REPORT INFORMATION
  Report Type: Spontaneous
  Country: US (occurrence: US)
  Receive Date: 20190128
  Receipt Date: 20190128
  Transmission Date: 20190417
  Serious: Yes (Other)
  Sender: FDA-Public Use
  Company Number: US-NOVOPROD-640465

PATIENT
  Age: 64 Year
  Sex: Female

DRUGS (4)
  1. LEVEMIR [Suspect]
     Active Substance: INSULIN DETEMIR
     Dosage: UNK (RESTARTED DOSE)
     Route: 058
  2. LANTUS [Concomitant]
     Active Substance: INSULIN GLARGINE
     Indication: TYPE 2 DIABETES MELLITUS
     Dosage: INJECT 40 UNITS INTO THE SKIN NIGHTLY
     Route: 058
  3. LEVEMIR [Suspect]
     Active Substance: INSULIN DETEMIR
     Indication: TYPE 2 DIABETES MELLITUS
     Dosage: UNK
     Route: 058
  4. LEVEMIR [Suspect]
     Active Substance: INSULIN DETEMIR
     Indication: TYPE 2 DIABETES MELLITUS
     Dosage: 40 UNITS ONCE A DAY
     Route: 058
     Dates: start: 201802

REACTIONS (31)
  - Scar [Not Recovered/Not Resolved]
  - Anxiety [Unknown]
  - Abdominal pain [Unknown]
  - Myalgia [Unknown]
  - Drug ineffective [Unknown]
  - Blood glucose increased [Unknown]
  - Mass [Unknown]
  - Breast mass [Unknown]
  - Blister [Unknown]
  - Glycosylated haemoglobin increased [Unknown]
  - Alopecia [Not Recovered/Not Resolved]
  - Rash [Not Recovered/Not Resolved]
  - Skin burning sensation [Not Recovered/Not Resolved]
  - Muscular weakness [Unknown]
  - Memory impairment [Unknown]
  - Pain in extremity [Unknown]
  - Injection site pruritus [Unknown]
  - Fatigue [Unknown]
  - Erythema [Unknown]
  - Chest pain [Unknown]
  - Fall [Unknown]
  - Mass [Not Recovered/Not Resolved]
  - Hypercholesterolaemia [Unknown]
  - Asthenia [Unknown]
  - Rash [Unknown]
  - Back pain [Unknown]
  - Cellulitis [Unknown]
  - Dizziness [Unknown]
  - Hemiparesis [Unknown]
  - Swelling [Unknown]
  - Wound complication [Unknown]

NARRATIVE: CASE EVENT DATE: 201802
